FAERS Safety Report 24868054 (Version 1)
Quarter: 2025Q1

REPORT INFORMATION
  Report Type: Spontaneous
  Country: US (occurrence: None)
  Receive Date: 20250120
  Receipt Date: 20250120
  Transmission Date: 20250408
  Serious: Yes (Hospitalization, Disabling, Other)
  Sender: FDA-CTU
  Company Number: None

PATIENT
  Age: 60 Year
  Sex: Female
  Weight: 78.75 kg

DRUGS (18)
  1. DYSPORT [Suspect]
     Active Substance: ABOBOTULINUMTOXINA
     Indication: Dystonia
     Route: 030
     Dates: start: 20220921, end: 20250120
  2. OCREVUS [Concomitant]
     Active Substance: OCRELIZUMAB
  3. LYRICA [Concomitant]
     Active Substance: PREGABALIN
  4. PROVIGIL [Concomitant]
     Active Substance: MODAFINIL
  5. ZANAFLEX [Concomitant]
     Active Substance: TIZANIDINE HYDROCHLORIDE
  6. CYMBALTA [Concomitant]
     Active Substance: DULOXETINE HYDROCHLORIDE
  7. PROLIA [Concomitant]
     Active Substance: DENOSUMAB
  8. PROTONIX [Concomitant]
     Active Substance: PANTOPRAZOLE SODIUM
  9. AMPYRA [Concomitant]
     Active Substance: DALFAMPRIDINE
  10. PLAQUENIL [Concomitant]
     Active Substance: HYDROXYCHLOROQUINE SULFATE
  11. VALSARTAN [Concomitant]
     Active Substance: VALSARTAN
  12. CRESTOR [Concomitant]
     Active Substance: ROSUVASTATIN CALCIUM
  13. TRELEGY ELLIPTA [Concomitant]
     Active Substance: FLUTICASONE FUROATE\UMECLIDINIUM BROMIDE\VILANTEROL TRIFENATATE
  14. ALBUTEROL [Concomitant]
     Active Substance: ALBUTEROL
  15. VITAMIN D3 [Concomitant]
     Active Substance: CHOLECALCIFEROL
  16. VITAMINS [Concomitant]
     Active Substance: VITAMINS
  17. MELATONIN [Concomitant]
     Active Substance: MELATONIN
  18. CALCIUM WITH MAGNESIUM + ZINC [Concomitant]

REACTIONS (9)
  - Diplopia [None]
  - Dyspnoea [None]
  - Multiple sclerosis relapse [None]
  - Multiple sclerosis [None]
  - Quadriparesis [None]
  - Speech disorder [None]
  - Dysphagia [None]
  - Aldolase increased [None]
  - Toxicity to various agents [None]

NARRATIVE: CASE EVENT DATE: 20240201
